FAERS Safety Report 19856799 (Version 1)
Quarter: 2021Q3

REPORT INFORMATION
  Report Type: Spontaneous
  Country: US (occurrence: US)
  Receive Date: 20210920
  Receipt Date: 20210920
  Transmission Date: 20211014
  Serious: No
  Sender: FDA-Public Use
  Company Number: US-BAUSCH-BL-2021-029043

PATIENT
  Age: 74 Year
  Sex: Female

DRUGS (2)
  1. RETIN?A MICRO [Suspect]
     Active Substance: TRETINOIN
     Indication: PRODUCT USE IN UNAPPROVED INDICATION
  2. RETIN?A MICRO [Suspect]
     Active Substance: TRETINOIN
     Indication: SYSTEMIC LUPUS ERYTHEMATOSUS RASH
     Route: 061
     Dates: end: 2021

REACTIONS (5)
  - Systemic lupus erythematosus rash [Not Recovered/Not Resolved]
  - Product use in unapproved indication [Unknown]
  - Inability to afford medication [Unknown]
  - Symptom recurrence [Not Recovered/Not Resolved]
  - Therapy interrupted [Unknown]

NARRATIVE: CASE EVENT DATE: 2021
